FAERS Safety Report 9443156 (Version 2)
Quarter: 2013Q3

REPORT INFORMATION
  Report Type: Report from Study
  Country: JP (occurrence: JP)
  Receive Date: 20130806
  Receipt Date: 20130822
  Transmission Date: 20140515
  Serious: Yes (Life-Threatening)
  Sender: FDA-Public Use
  Company Number: JP-ROCHE-1257510

PATIENT
  Age: 10 Year
  Sex: Female

DRUGS (1)
  1. RITUXIMAB [Suspect]
     Indication: LIVER TRANSPLANT
     Route: 065

REACTIONS (1)
  - Post transplant lymphoproliferative disorder [Recovered/Resolved]
